FAERS Safety Report 7813778-1 (Version None)
Quarter: 2011Q4

REPORT INFORMATION
  Report Type: 
  Country: None (occurrence: None)
  Receive Date: 20111014
  Receipt Date: 20111003
  Transmission Date: 20120403
  Serious: Yes (Hospitalization)
  Sender: FDA-Public Use
  Company Number: US-JNJFOC-20110811620

PATIENT
  Sex: Female

DRUGS (5)
  1. APRISO [Concomitant]
     Indication: CROHN'S DISEASE
     Route: 065
     Dates: start: 20090624, end: 20110811
  2. PREDNISONE [Concomitant]
     Indication: CROHN'S DISEASE
     Route: 065
     Dates: start: 20110629
  3. MERCAPTOPURINE [Concomitant]
     Indication: CROHN'S DISEASE
     Route: 065
     Dates: start: 20090714, end: 20110811
  4. REMICADE [Suspect]
     Indication: CROHN'S DISEASE
     Route: 042
     Dates: start: 20090720, end: 20110602
  5. MERCAPTOPURINE [Concomitant]
     Route: 065

REACTIONS (4)
  - IRON DEFICIENCY ANAEMIA [None]
  - CROHN'S DISEASE [None]
  - ANORECTAL DISORDER [None]
  - DRUG INEFFECTIVE [None]
